FAERS Safety Report 4950884-3 (Version None)
Quarter: 2006Q1

REPORT INFORMATION
  Report Type: 
  Country: None (occurrence: None)
  Receive Date: 20060316
  Receipt Date: 20060309
  Transmission Date: 20060701
  Serious: Yes (Death, Hospitalization)
  Sender: FDA-Public Use
  Company Number: HQWYE482523AUG04

PATIENT
  Age: 67 Year
  Sex: Male

DRUGS (2)
  1. CORDARONE [Suspect]
     Indication: ARRHYTHMIA
     Dosage: 200 MG 1X PER  1 DAY
     Route: 048
     Dates: start: 20020701, end: 20040604
  2. CORDARONE [Suspect]
     Indication: VENTRICULAR TACHYCARDIA
     Dosage: 200 MG 1X PER  1 DAY
     Route: 048
     Dates: start: 20020701, end: 20040604

REACTIONS (5)
  - ACUTE RESPIRATORY FAILURE [None]
  - ARTERIOSCLEROSIS CORONARY ARTERY [None]
  - MYOCARDIAL ISCHAEMIA [None]
  - PNEUMONITIS [None]
  - PULMONARY EMBOLISM [None]
